FAERS Safety Report 11047072 (Version 2)
Quarter: 2015Q2

REPORT INFORMATION
  Report Type: Spontaneous
  Country: FR (occurrence: FR)
  Receive Date: 20150420
  Receipt Date: 20150427
  Transmission Date: 20150821
  Serious: Yes (Hospitalization)
  Sender: FDA-Public Use
  Company Number: FR-SA-2015SA046904

PATIENT
  Age: 73 Year
  Sex: Female

DRUGS (13)
  1. LANTUS [Concomitant]
     Active Substance: INSULIN GLARGINE
  2. VICTOZA [Concomitant]
     Active Substance: LIRAGLUTIDE
  3. DOCETAXEL. [Suspect]
     Active Substance: DOCETAXEL
     Route: 042
     Dates: end: 20150313
  4. COAPROVEL [Interacting]
     Active Substance: HYDROCHLOROTHIAZIDE\IRBESARTAN
     Route: 048
     Dates: end: 20150322
  5. VOLTAREN [Interacting]
     Active Substance: DICLOFENAC SODIUM
     Route: 048
  6. NOVONORM [Concomitant]
     Active Substance: REPAGLINIDE
  7. LEXOMIL [Concomitant]
     Active Substance: BROMAZEPAM
  8. TRASTUZUMAB [Concomitant]
     Active Substance: TRASTUZUMAB
     Dates: end: 20150313
  9. SOLIAN [Concomitant]
     Active Substance: AMISULPRIDE
  10. AMOXICILLINE [Interacting]
     Active Substance: AMOXICILLIN
     Indication: UPPER RESPIRATORY TRACT INFECTION
     Route: 048
     Dates: start: 201503, end: 201503
  11. METFORMIN [Concomitant]
     Active Substance: METFORMIN HYDROCHLORIDE
  12. INEXIUM [Concomitant]
     Active Substance: ESOMEPRAZOLE
  13. VESICARE [Concomitant]
     Active Substance: SOLIFENACIN SUCCINATE

REACTIONS (6)
  - Drug interaction [Unknown]
  - Acute kidney injury [Recovering/Resolving]
  - Diarrhoea [Recovering/Resolving]
  - Hypotension [Recovered/Resolved]
  - Pseudomembranous colitis [Recovering/Resolving]
  - Clostridium difficile infection [Recovering/Resolving]

NARRATIVE: CASE EVENT DATE: 201503
